FAERS Safety Report 8885801 (Version 1)
Quarter: 2012Q4

REPORT INFORMATION
  Report Type: 
  Country: CN (occurrence: CN)
  Receive Date: 20121105
  Receipt Date: 20121105
  Transmission Date: 20130627
  Serious: Yes (Other)
  Sender: FDA-Public Use
  Company Number: CN-BAYER-2012-115036

PATIENT
  Age: 43 Year
  Sex: Female
  Weight: 66.5 kg

DRUGS (1)
  1. GLUCOBAY [Suspect]
     Indication: DIABETES
     Dosage: 50 mg, BID
     Route: 048
     Dates: start: 20110429, end: 20110502

REACTIONS (2)
  - Pruritus [Recovered/Resolved]
  - Pruritus [Recovered/Resolved]
